FAERS Safety Report 5824124-7 (Version None)
Quarter: 2008Q3

REPORT INFORMATION
  Report Type: 
  Country: None (occurrence: None)
  Receive Date: 20080728
  Receipt Date: 20080716
  Transmission Date: 20090109
  Serious: Yes (Hospitalization, Disabling, Other)
  Sender: FDA-Public Use
  Company Number: US-ROCHE-385470

PATIENT
  Sex: Female
  Weight: 45.4 kg

DRUGS (6)
  1. ACCUTANE [Suspect]
     Indication: ACNE
     Route: 048
     Dates: start: 19980509, end: 19980513
  2. ACCUTANE [Suspect]
     Route: 048
     Dates: start: 19980529, end: 19981015
  3. REMICADE [Suspect]
     Route: 065
  4. ORTHO TRI-CYCLEN [Concomitant]
     Dates: start: 19980101
  5. KEFLEX [Concomitant]
     Indication: FOLLICULITIS
     Dates: start: 19980721, end: 19980728
  6. HIBICLENS [Concomitant]
     Indication: FOLLICULITIS
     Dates: start: 19980721

REACTIONS (37)
  - ADJUSTMENT DISORDER WITH MIXED ANXIETY AND DEPRESSED MOOD [None]
  - ANOREXIA [None]
  - ARTHRALGIA [None]
  - AUTOIMMUNE DISORDER [None]
  - BLOOD ALBUMIN DECREASED [None]
  - BLOOD CALCIUM DECREASED [None]
  - CHRONIC FATIGUE SYNDROME [None]
  - COLITIS [None]
  - COLITIS ULCERATIVE [None]
  - CROHN'S DISEASE [None]
  - DEPRESSION [None]
  - DYSPEPSIA [None]
  - ENTERITIS [None]
  - FOLLICULITIS [None]
  - GASTROINTESTINAL DISORDER [None]
  - HAEMATURIA [None]
  - HAEMORRHOIDS [None]
  - HEADACHE [None]
  - INFLAMMATORY BOWEL DISEASE [None]
  - INSOMNIA [None]
  - INTESTINAL HAEMORRHAGE [None]
  - LABORATORY TEST ABNORMAL [None]
  - LIP DRY [None]
  - MULTI-ORGAN DISORDER [None]
  - NIGHT BLINDNESS [None]
  - OEDEMA PERIPHERAL [None]
  - OSTEOPENIA [None]
  - PLATELET COUNT INCREASED [None]
  - PLEUROPERICARDITIS [None]
  - PROCTITIS [None]
  - PROTEIN TOTAL DECREASED [None]
  - PROTEINURIA [None]
  - PSEUDOPOLYP [None]
  - RAYNAUD'S PHENOMENON [None]
  - RECTAL HAEMORRHAGE [None]
  - SOMNOLENCE [None]
  - SYSTEMIC LUPUS ERYTHEMATOSUS [None]
